FAERS Safety Report 7313252-5 (Version None)
Quarter: 2011Q1

REPORT INFORMATION
  Report Type: 
  Country: None (occurrence: None)
  Receive Date: 20110216
  Receipt Date: 20110216
  Transmission Date: 20110831
  Serious: Yes (Other)
  Sender: FDA-Public Use
  Company Number: None

PATIENT
  Weight: 77.1115 kg

DRUGS (1)
  1. COREG [Suspect]
     Dosage: 25MG BID
     Dates: start: 20040101

REACTIONS (2)
  - CHEST PAIN [None]
  - PRODUCT SUBSTITUTION ISSUE [None]
